FAERS Safety Report 5831647-3 (Version None)
Quarter: 2008Q3

REPORT INFORMATION
  Report Type: 
  Country: None (occurrence: None)
  Receive Date: 20080730
  Receipt Date: 20080715
  Transmission Date: 20090109
  Serious: Yes (Hospitalization)
  Sender: FDA-Public Use
  Company Number: 2008AL008274

PATIENT
  Age: 84 Year
  Sex: Male

DRUGS (16)
  1. DIGOXIN [Suspect]
     Dosage: 0.25MG, DAILY, PO
     Route: 048
  2. ZAROXOLYN [Concomitant]
  3. VITAMIN E [Concomitant]
  4. ASPIRIN [Concomitant]
  5. COREG [Concomitant]
  6. POTASSIUM CHLORIDE [Concomitant]
  7. COUMADIN [Concomitant]
  8. MAVIK [Concomitant]
  9. CARAFATE [Concomitant]
  10. NITROGLYCERIN [Concomitant]
  11. LASIX [Concomitant]
  12. LIPITOR [Concomitant]
  13. AMIODARONE HCL [Concomitant]
  14. NAMEDA [Concomitant]
  15. NEURONTIN [Concomitant]
  16. SENOKOT [Concomitant]

REACTIONS (9)
  - BLOOD UREA INCREASED [None]
  - CARDIOACTIVE DRUG LEVEL ABOVE THERAPEUTIC [None]
  - DIZZINESS [None]
  - HAEMOGLOBIN DECREASED [None]
  - HYPOAESTHESIA [None]
  - OEDEMA PERIPHERAL [None]
  - SEBORRHOEIC KERATOSIS [None]
  - THERAPEUTIC AGENT TOXICITY [None]
  - TRANSIENT ISCHAEMIC ATTACK [None]
